FAERS Safety Report 25812146 (Version 1)
Quarter: 2025Q3

REPORT INFORMATION
  Report Type: Spontaneous
  Country: US (occurrence: None)
  Receive Date: 20250916
  Receipt Date: 20250916
  Transmission Date: 20251021
  Serious: Yes (Other)
  Sender: FDA-CTU
  Company Number: None

PATIENT
  Age: 17 Year
  Sex: Female
  Weight: 62.1 kg

DRUGS (8)
  1. CETIRIZINE [Suspect]
     Active Substance: CETIRIZINE HYDROCHLORIDE
     Indication: Illness
     Dosage: OTHER QUANTITY : 1 TABLET(S);?FREQUENCY : AT BEDTIME;?
     Route: 048
  2. Dexmethlyphenidate 15mg ER capsule once daily [Concomitant]
  3. Fluconazole 200mg tablet 200mg tablets 2 for first day and 1 daily for [Concomitant]
  4. Senna 8.6mg tablet once daily [Concomitant]
  5. Gallifrey 5mg tablet once daily Celecoxib 200mg capsule once daily [Concomitant]
  6. Dexmethylphenidate 2.5mg tablets 1-2 times daily (as needed) [Concomitant]
  7. Famotidine 20mg tablets twice daily [Concomitant]
  8. Once a day mens multivitamin, 2 gummies daily [Concomitant]

REACTIONS (3)
  - Hypersensitivity [None]
  - Rhinorrhoea [None]
  - Therapy cessation [None]

NARRATIVE: CASE EVENT DATE: 20250908
